FAERS Safety Report 4852533-1 (Version None)
Quarter: 2005Q4

REPORT INFORMATION
  Report Type: 
  Country: None (occurrence: None)
  Receive Date: 20051213
  Receipt Date: 20051202
  Transmission Date: 20060501
  Serious: Yes (Hospitalization)
  Sender: FDA-Public Use
  Company Number: PHBS2005MX17945

PATIENT
  Age: 75 Year
  Sex: Female

DRUGS (2)
  1. TEGRETOL [Suspect]
     Indication: PERIPHERAL NERVE OPERATION
     Dosage: 1 TABLET, ONCE/SINGLE
     Route: 048
     Dates: start: 20051201, end: 20051201
  2. CHEMOTHERAPEUTICS,OTHER [Concomitant]

REACTIONS (2)
  - BREAST OPERATION [None]
  - HEADACHE [None]
